FAERS Safety Report 12423036 (Version 2)
Quarter: 2016Q2

REPORT INFORMATION
  Report Type: Spontaneous
  Country: US (occurrence: US)
  Receive Date: 20160601
  Receipt Date: 20160606
  Transmission Date: 20160815
  Serious: No
  Sender: FDA-Public Use
  Company Number: US-PFIZER INC-2016280116

PATIENT
  Sex: Female

DRUGS (1)
  1. BICILLIN L-A [Suspect]
     Active Substance: PENICILLIN G BENZATHINE
     Indication: LYME DISEASE
     Dosage: UNK

REACTIONS (2)
  - Gait disturbance [Unknown]
  - Product use issue [Unknown]
